FAERS Safety Report 11424606 (Version 2)
Quarter: 2015Q3

REPORT INFORMATION
  Report Type: Spontaneous
  Country: US (occurrence: US)
  Receive Date: 20150827
  Receipt Date: 20150903
  Transmission Date: 20151125
  Serious: Yes (Other)
  Sender: FDA-Public Use
  Company Number: US-PERRIGO-15US008652

PATIENT
  Sex: Male
  Weight: 77.55 kg

DRUGS (5)
  1. ANTIHYPERTENSIVES [Concomitant]
     Active Substance: UNSPECIFIED INGREDIENT
     Indication: HYPERTENSION
     Dosage: UNK
     Route: 048
  2. ACETAMINOPHEN 500MG 484 [Suspect]
     Active Substance: ACETAMINOPHEN
     Indication: HEADACHE
     Dosage: 1000 MG, EVERY 8 HOURS
     Route: 048
     Dates: start: 20150809
  3. ZONEGRAN [Suspect]
     Active Substance: ZONISAMIDE
     Indication: PRODUCT USED FOR UNKNOWN INDICATION
     Dosage: UNK
     Route: 065
  4. ACETAMINOPHEN 500MG 484 [Suspect]
     Active Substance: ACETAMINOPHEN
     Dosage: 1000 MG, EVERY 8 HOURS
     Route: 048
     Dates: start: 2015, end: 2015
  5. ANTIDEPRESSANTS [Concomitant]
     Active Substance: UNSPECIFIED INGREDIENT
     Indication: DEPRESSION
     Dosage: UNK
     Route: 048

REACTIONS (4)
  - Incorrect drug administration duration [Not Recovered/Not Resolved]
  - Insomnia [Recovering/Resolving]
  - Feeling abnormal [Not Recovered/Not Resolved]
  - Seizure [Not Recovered/Not Resolved]

NARRATIVE: CASE EVENT DATE: 2015
